FAERS Safety Report 5009926-1 (Version None)
Quarter: 2006Q2

REPORT INFORMATION
  Report Type: 
  Country: None (occurrence: None)
  Receive Date: 20060522
  Receipt Date: 20060426
  Transmission Date: 20061013
  Serious: Yes (Hospitalization)
  Sender: FDA-Public Use
  Company Number: 6022205

PATIENT
  Age: 64 Year
  Sex: Male

DRUGS (6)
  1. BISOPROLOL FUMARATE [Suspect]
     Indication: CARDIAC FAILURE
     Dosage: SEE IMAGE
     Route: 048
     Dates: start: 20060307, end: 20060307
  2. FUROSEMIDE                        (FUROSEMIDE SODIUM) [Suspect]
     Indication: CARDIAC FAILURE
     Dosage: 0,500 DOSAGE FORMS (0,5 DOSAGE FORMS, 1 IN 1 D)
     Route: 048
     Dates: start: 20060306, end: 20060306
  3. RAMIPRIL [Suspect]
     Indication: CARDIAC FAILURE
     Dosage: 0,500 DOSAGE FORMS (0,5 DOSAGE FORMS, 1 IN 1 D)
     Route: 048
     Dates: end: 20060306
  4. MOTILIUM [Concomitant]
  5. TIORFAN                    (ACETORPHAN) [Concomitant]
  6. ATORVASTATIN CALCIUM [Concomitant]

REACTIONS (7)
  - CIRCULATORY COLLAPSE [None]
  - DEHYDRATION [None]
  - DIARRHOEA [None]
  - HYPOTENSION [None]
  - HYPOVOLAEMIA [None]
  - RENAL FAILURE ACUTE [None]
  - VOMITING [None]
